FAERS Safety Report 9892321 (Version 1)
Quarter: 2014Q1

REPORT INFORMATION
  Report Type: Spontaneous
  Country: DE (occurrence: DE)
  Receive Date: 20140212
  Receipt Date: 20140212
  Transmission Date: 20141002
  Serious: Yes (Life-Threatening, Hospitalization)
  Sender: FDA-Public Use
  Company Number: GXKR2014DE000850

PATIENT
  Sex: 0

DRUGS (3)
  1. CLOZAPINE [Suspect]
     Indication: SCHIZOPHRENIA, PARANOID TYPE
     Route: 048
     Dates: start: 20131212, end: 20131223
  2. QUETIAPINE [Concomitant]
     Indication: SCHIZOPHRENIA, PARANOID TYPE
     Route: 048
     Dates: start: 2011
  3. AMISULPRID [Concomitant]
     Indication: SCHIZOPHRENIA, PARANOID TYPE
     Route: 048
     Dates: start: 2001, end: 20131226

REACTIONS (4)
  - Hypersensitivity vasculitis [Not Recovered/Not Resolved]
  - Acute respiratory distress syndrome [Not Recovered/Not Resolved]
  - Cardiac failure [Not Recovered/Not Resolved]
  - Renal failure acute [Not Recovered/Not Resolved]
